FAERS Safety Report 20984549 (Version 1)
Quarter: 2022Q2

REPORT INFORMATION
  Report Type: Spontaneous
  Country: US (occurrence: None)
  Receive Date: 20220621
  Receipt Date: 20220621
  Transmission Date: 20220721
  Serious: No
  Sender: FDA-Public Use
  Company Number: US-ROCHE-2859113

PATIENT
  Sex: Female

DRUGS (2)
  1. CAPECITABINE [Suspect]
     Active Substance: CAPECITABINE
     Indication: Product used for unknown indication
     Route: 065
  2. TUKYSA [Suspect]
     Active Substance: TUCATINIB
     Indication: Breast cancer female
     Route: 065

REACTIONS (16)
  - Ill-defined disorder [Unknown]
  - Rash erythematous [Unknown]
  - Decreased appetite [Unknown]
  - Anosmia [Unknown]
  - Feeling hot [Unknown]
  - Erythema [Unknown]
  - Muscle spasms [Unknown]
  - Stomatitis [Unknown]
  - Lip swelling [Unknown]
  - Asthenia [Unknown]
  - Epistaxis [Unknown]
  - Oral pain [Unknown]
  - Rash [Unknown]
  - Gastrooesophageal reflux disease [Unknown]
  - Abdominal discomfort [Unknown]
  - Rhinorrhoea [Unknown]
